FAERS Safety Report 9768278 (Version 1)
Quarter: 2013Q4

REPORT INFORMATION
  Report Type: Spontaneous
  Country: US (occurrence: US)
  Receive Date: 20131217
  Receipt Date: 20131217
  Transmission Date: 20140711
  Serious: Yes (Other)
  Sender: FDA-Public Use
  Company Number: US-TEVA-450439USA

PATIENT
  Age: 31 Year
  Sex: Female
  Weight: 50.85 kg

DRUGS (4)
  1. PARAGARD 380A [Suspect]
     Indication: CONTRACEPTION
     Route: 015
     Dates: start: 201207, end: 201308
  2. PARAGARD 380A [Suspect]
     Route: 015
     Dates: start: 201308, end: 20131203
  3. B-KOMPLEX [Concomitant]
     Indication: STRESS
  4. ASCORBIC ACID [Concomitant]

REACTIONS (6)
  - Pregnancy [Not Recovered/Not Resolved]
  - Drug ineffective [Unknown]
  - Device dislocation [Recovered/Resolved]
  - Dysmenorrhoea [Recovered/Resolved]
  - Menstruation delayed [Not Recovered/Not Resolved]
  - Menorrhagia [Recovered/Resolved]
